FAERS Safety Report 12748095 (Version 1)
Quarter: 2016Q3

REPORT INFORMATION
  Report Type: Spontaneous
  Country: US (occurrence: US)
  Receive Date: 20160915
  Receipt Date: 20160915
  Transmission Date: 20161109
  Serious: Yes (Hospitalization)
  Sender: FDA-Public Use
  Company Number: US-ASTELLAS-2016US005747

PATIENT
  Sex: Male

DRUGS (2)
  1. XTANDI [Suspect]
     Active Substance: ENZALUTAMIDE
     Indication: PROSTATE CANCER
     Route: 048
     Dates: start: 20160120
  2. XTANDI [Suspect]
     Active Substance: ENZALUTAMIDE
     Route: 065
     Dates: end: 20160505

REACTIONS (8)
  - Joint swelling [Recovering/Resolving]
  - Peripheral swelling [Unknown]
  - Malaise [Recovering/Resolving]
  - Retching [Recovering/Resolving]
  - Swelling face [Recovering/Resolving]
  - Swelling face [Unknown]
  - Peripheral swelling [Recovering/Resolving]
  - Vomiting [Recovering/Resolving]
